FAERS Safety Report 16698946 (Version 1)
Quarter: 2019Q3

REPORT INFORMATION
  Report Type: Spontaneous
  Country: GB (occurrence: GB)
  Receive Date: 20190813
  Receipt Date: 20190813
  Transmission Date: 20191004
  Serious: Yes (Disabling, Other)
  Sender: FDA-Public Use
  Company Number: GB-TEVA-2019-GB-1091630

PATIENT
  Age: 67 Year
  Sex: Female
  Weight: 51.71 kg

DRUGS (4)
  1. COCODAMOL [Suspect]
     Active Substance: ACETAMINOPHEN\CODEINE PHOSPHATE
     Indication: MUSCULOSKELETAL PAIN
     Dosage: 15MG/500MG. ONE OR TWO FOUR TIMES A DAY WHEN REQUIRED.  I ONLY TOOK ONE FOUR TIMES A DAY
     Route: 048
     Dates: start: 20190621, end: 20190625
  2. COCODAMOL [Suspect]
     Active Substance: ACETAMINOPHEN\CODEINE PHOSPHATE
     Dosage: 30MG/500MG. ONE OR TWO FOUR TIMES A DAY WHEN REQUIRED.  I ONLY TOOK ONE FOUR TIMES A DAY
     Route: 048
     Dates: start: 20190617, end: 20190621
  3. NAPROXEN. [Concomitant]
     Active Substance: NAPROXEN
     Dosage: ONE THREE TIMES A DAY, 200 MILLIGRAM
  4. LISINOPRIL. [Concomitant]
     Active Substance: LISINOPRIL
     Dosage: 2.5 MILLIGRAM

REACTIONS (13)
  - Peripheral swelling [Recovered/Resolved]
  - Joint swelling [Recovered/Resolved]
  - Gait disturbance [Recovered/Resolved]
  - Constipation [Recovered/Resolved]
  - Abdominal distension [Recovered/Resolved]
  - Joint stiffness [Recovered/Resolved]
  - Abnormal weight gain [Recovered/Resolved]
  - Dysuria [Recovered/Resolved]
  - Somnolence [Recovered/Resolved]
  - Confusional state [Recovered/Resolved]
  - Nausea [Recovered/Resolved]
  - Arthralgia [Recovered/Resolved]
  - Muscular weakness [Recovered/Resolved]

NARRATIVE: CASE EVENT DATE: 20190618
